FAERS Safety Report 15707587 (Version 1)
Quarter: 2018Q4

REPORT INFORMATION
  Report Type: Spontaneous
  Country: US (occurrence: US)
  Receive Date: 20181211
  Receipt Date: 20181211
  Transmission Date: 20190205
  Serious: No
  Sender: FDA-Public Use
  Company Number: US-BIOGEN-2018BI00666542

PATIENT
  Sex: Female

DRUGS (5)
  1. ROPINROLE HCL [Concomitant]
     Route: 065
  2. PLEGRIDY [Suspect]
     Active Substance: PEGINTERFERON BETA-1A
     Indication: MULTIPLE SCLEROSIS
     Dosage: INJECT 125MCG SUBCUTANEOUSLY EVERY 2 WEEKS
     Route: 058
  3. MAGNESIUM [Concomitant]
     Active Substance: MAGNESIUM
     Route: 065
  4. CYMBALTA [Concomitant]
     Active Substance: DULOXETINE HYDROCHLORIDE
     Route: 065
  5. MECLIZINE HCL [Concomitant]
     Active Substance: MECLIZINE HYDROCHLORIDE
     Route: 065

REACTIONS (3)
  - Urinary incontinence [Unknown]
  - Multiple sclerosis relapse [Recovered/Resolved]
  - Product dose omission [Unknown]
